FAERS Safety Report 7632664-3 (Version None)
Quarter: 2011Q3

REPORT INFORMATION
  Report Type: 
  Country: None (occurrence: None)
  Receive Date: 20110725
  Receipt Date: 20101117
  Transmission Date: 20111222
  Serious: No
  Sender: FDA-Public Use
  Company Number: US-BRISTOL-MYERS SQUIBB COMPANY-15391428

PATIENT
  Age: 73 Year
  Sex: Male

DRUGS (7)
  1. VITAMIN TAB [Concomitant]
     Dosage: GLUTEN FREE VITAMINS
  2. SIMVASTATIN [Concomitant]
  3. FUROSEMIDE [Concomitant]
  4. DILANTIN [Concomitant]
  5. COREG [Concomitant]
  6. COUMADIN [Suspect]
     Dosage: FOR YRS.
  7. ALTACE [Concomitant]

REACTIONS (1)
  - DYSPEPSIA [None]
